FAERS Safety Report 8167553-1 (Version None)
Quarter: 2012Q1

REPORT INFORMATION
  Report Type: 
  Country: None (occurrence: None)
  Receive Date: 20120222
  Receipt Date: 20120208
  Transmission Date: 20120608
  Serious: Yes (Other)
  Sender: FDA-Public Use
  Company Number: US-1190418

PATIENT
  Age: 86 Year
  Sex: Male

DRUGS (3)
  1. BETADINE [Suspect]
     Indication: PREOPERATIVE CARE
     Dosage: OPHTHALMIC
     Route: 047
     Dates: start: 20120207, end: 20120207
  2. BSS [Suspect]
     Indication: INTRAOCULAR LENS IMPLANT
     Dosage: INTRAOCULAR
     Route: 031
     Dates: start: 20120207, end: 20120207
  3. BSS PLUS [Suspect]
     Indication: INTRAOCULAR LENS IMPLANT
     Dosage: INTRAOCULAR
     Route: 031
     Dates: start: 20120207, end: 20120207

REACTIONS (1)
  - TOXIC ANTERIOR SEGMENT SYNDROME [None]
